FAERS Safety Report 10782719 (Version 1)
Quarter: 2015Q1

REPORT INFORMATION
  Report Type: Spontaneous
  Country: US (occurrence: None)
  Receive Date: 20150209
  Receipt Date: 20150209
  Transmission Date: 20150721
  Serious: Yes (Hospitalization)
  Sender: FDA-Public Use
  Company Number: None

PATIENT
  Age: 54 Year
  Sex: Male
  Weight: 70.85 kg

DRUGS (1)
  1. HARVONI [Suspect]
     Active Substance: LEDIPASVIR\SOFOSBUVIR
     Indication: CHRONIC HEPATITIS C
     Dates: start: 20141122

REACTIONS (4)
  - Blood urine present [None]
  - Rhabdomyolysis [None]
  - Upper respiratory tract infection [None]
  - Oral herpes [None]

NARRATIVE: CASE EVENT DATE: 20141229
